FAERS Safety Report 18656042 (Version 3)
Quarter: 2021Q2

REPORT INFORMATION
  Report Type: Spontaneous
  Country: BR (occurrence: BR)
  Receive Date: 20201223
  Receipt Date: 20210401
  Transmission Date: 20210717
  Serious: Yes (Other)
  Sender: FDA-Public Use
  Company Number: BR-SA-2020SA358938

PATIENT
  Age: 67 Year
  Sex: Female
  Weight: 93 kg

DRUGS (4)
  1. METAMIZOLE [Concomitant]
     Active Substance: METAMIZOLE
     Indication: PAIN
  2. PREDNISONE. [Concomitant]
     Active Substance: PREDNISONE
  3. ARAVA [Suspect]
     Active Substance: LEFLUNOMIDE
     Indication: RHEUMATOID ARTHRITIS
     Dosage: 3 DF, QD
     Route: 048
  4. AMLODIPINE [Concomitant]
     Active Substance: AMLODIPINE BESYLATE
     Indication: BLOOD PRESSURE MEASUREMENT

REACTIONS (9)
  - Drug interaction [Unknown]
  - Ear pain [Recovering/Resolving]
  - Jaw fracture [Recovering/Resolving]
  - Stenosis [Unknown]
  - Pain [Recovering/Resolving]
  - Deafness [Recovering/Resolving]
  - Sepsis [Recovering/Resolving]
  - Mouth swelling [Recovering/Resolving]
  - Herpes zoster [Recovering/Resolving]

NARRATIVE: CASE EVENT DATE: 202006
